FAERS Safety Report 7621076-4 (Version None)
Quarter: 2011Q3

REPORT INFORMATION
  Report Type: 
  Country: None (occurrence: None)
  Receive Date: 20110719
  Receipt Date: 20100525
  Transmission Date: 20111222
  Serious: No
  Sender: FDA-Public Use
  Company Number: US-KINGPHARMUSA00001-K201000644

PATIENT
  Sex: Female

DRUGS (2)
  1. LEVOXYL [Suspect]
     Indication: THYROID DISORDER
     Dosage: UNK
     Route: 048
  2. LEVOXYL [Suspect]
     Dosage: 87.5 MCG, UNK
     Route: 048

REACTIONS (2)
  - CHEST DISCOMFORT [None]
  - RETCHING [None]
